FAERS Safety Report 18649698 (Version 3)
Quarter: 2021Q2

REPORT INFORMATION
  Report Type: Spontaneous
  Country: US (occurrence: US)
  Receive Date: 20201222
  Receipt Date: 20210531
  Transmission Date: 20210717
  Serious: No
  Sender: FDA-Public Use
  Company Number: US-PFIZER INC-2020504575

PATIENT
  Age: 73 Year
  Sex: Female

DRUGS (1)
  1. IBRANCE [Suspect]
     Active Substance: PALBOCICLIB
     Indication: BREAST CANCER FEMALE
     Dosage: 125 MG (21 DAYS ON, 7 DAYS OFF ON A 28 DAY CYCLE)

REACTIONS (2)
  - Product dose omission issue [Unknown]
  - Diarrhoea [Recovered/Resolved]
